FAERS Safety Report 10131661 (Version 2)
Quarter: 2014Q2

REPORT INFORMATION
  Report Type: Spontaneous
  Country: US (occurrence: US)
  Receive Date: 20140428
  Receipt Date: 20140430
  Transmission Date: 20141212
  Serious: Yes (Other)
  Sender: FDA-Public Use
  Company Number: US-PFIZER INC-2014116342

PATIENT
  Sex: Male

DRUGS (1)
  1. TESTOSTERONE CIPIONATE [Suspect]
     Dosage: UNK, EVERY 2 WEEKS

REACTIONS (3)
  - Haemorrhage [Unknown]
  - Pain [Unknown]
  - Drug effect decreased [Unknown]
